FAERS Safety Report 5097057-4 (Version None)
Quarter: 2006Q3

REPORT INFORMATION
  Report Type: 
  Country: None (occurrence: None)
  Receive Date: 20060901
  Receipt Date: 20060821
  Transmission Date: 20061208
  Serious: Yes (Hospitalization)
  Sender: FDA-Public Use
  Company Number: 2006102123

PATIENT
  Sex: Female

DRUGS (2)
  1. CABERGOLINE [Suspect]
     Indication: DRUG USE FOR UNKNOWN INDICATION
  2. LEVODOPA/CARBIDOPA (CARBIDOPA, LEVODOPA) [Suspect]
     Indication: PARKINSON'S DISEASE
     Dosage: ORAL
     Route: 048

REACTIONS (3)
  - CONDITION AGGRAVATED [None]
  - PARKINSON'S DISEASE [None]
  - PHARMACEUTICAL PRODUCT COMPLAINT [None]
